FAERS Safety Report 10343935 (Version 1)
Quarter: 2014Q3

REPORT INFORMATION
  Report Type: Spontaneous
  Country: US (occurrence: None)
  Receive Date: 20140724
  Receipt Date: 20140724
  Transmission Date: 20150326
  Serious: No
  Sender: FDA-Public Use
  Company Number: None

PATIENT
  Age: 79 Year
  Sex: Female
  Weight: 68.95 kg

DRUGS (7)
  1. IRBESARTAN. [Concomitant]
     Active Substance: IRBESARTAN
  2. DORZOLAMIDE [Concomitant]
     Active Substance: DORZOLAMIDE
  3. TIMOLOL [Concomitant]
     Active Substance: TIMOLOL
  4. SIMVASTATIN. [Concomitant]
     Active Substance: SIMVASTATIN
  5. PRAMIPEXOLE [Suspect]
     Active Substance: PRAMIPEXOLE
     Indication: MUSCULOSKELETAL DISORDER
     Dosage: TAB 0.125MG?ONE PILL?EVERY EVENING 2 HOURS BEFORE BED?MOUTH
     Route: 048
     Dates: start: 201303, end: 201305
  6. EYES LATANOPROST [Concomitant]
  7. FISH OIL [Concomitant]
     Active Substance: FISH OIL

REACTIONS (4)
  - Asthenia [None]
  - Somnolence [None]
  - Pain [None]
  - Decreased activity [None]

NARRATIVE: CASE EVENT DATE: 201304
